FAERS Safety Report 7075436-3 (Version None)
Quarter: 2010Q4

REPORT INFORMATION
  Report Type: 
  Country: None (occurrence: None)
  Receive Date: 20101030
  Receipt Date: 20101026
  Transmission Date: 20110411
  Serious: No
  Sender: FDA-Public Use
  Company Number: US-WYE-H17349210

PATIENT
  Sex: Male
  Weight: 80.81 kg

DRUGS (6)
  1. TORISEL [Suspect]
     Indication: RENAL CELL CARCINOMA
     Dosage: NOT PROVIDED
     Route: 042
     Dates: start: 20100527, end: 20100826
  2. AMLODIPINE [Concomitant]
  3. METOPROLOL [Concomitant]
  4. OLMESARTAN MEDOXOMIL [Concomitant]
  5. LEVOTHYROXINE SODIUM [Concomitant]
  6. OMEPRAZOLE [Concomitant]

REACTIONS (1)
  - LUNG INFILTRATION [None]
